FAERS Safety Report 23392653 (Version 1)
Quarter: 2024Q1

REPORT INFORMATION
  Report Type: Spontaneous
  Country: US (occurrence: US)
  Receive Date: 20240111
  Receipt Date: 20240111
  Transmission Date: 20240410
  Serious: No
  Sender: FDA-Public Use
  Company Number: US-REGENERON PHARMACEUTICALS, INC.-2023-085994

PATIENT
  Age: 94 Year
  Sex: Female

DRUGS (2)
  1. EYLEA [Suspect]
     Active Substance: AFLIBERCEPT
     Indication: Neovascular age-related macular degeneration
     Dosage: 2 MG, EVERY4 WEEKS IN LEFT EYE;  FORMULATION: PRE-FILLED SYRINGE (GERRESHEIMER)
     Dates: start: 20210817, end: 2023
  2. EYLEA [Suspect]
     Active Substance: AFLIBERCEPT
     Indication: Choroidal neovascularisation
     Dosage: 2 MG, EVERY4 WEEKS IN LEFT EYE;  FORMULATION: PRE-FILLED SYRINGE (GERRESHEIMER)
     Dates: start: 2023

REACTIONS (1)
  - Product dose omission issue [Recovered/Resolved]

NARRATIVE: CASE EVENT DATE: 20230630
